FAERS Safety Report 9171797 (Version 4)
Quarter: 2014Q2

REPORT INFORMATION
  Report Type: Spontaneous
  Country: CN (occurrence: None)
  Receive Date: 20130313
  Receipt Date: 20140521
  Transmission Date: 20141212
  Serious: Yes (Hospitalization, Other)
  Sender: FDA-Public Use
  Company Number: VAL_02210_2013

PATIENT
  Age: 64 Year
  Sex: Male

DRUGS (3)
  1. LOTENSIN [Suspect]
     Indication: HYPERTENSION
     Dosage: [1 TABLET IN THE NIGHT]
     Route: 048
     Dates: start: 20130301
  2. PLENDIL [Concomitant]
  3. ZHENJU [Concomitant]

REACTIONS (6)
  - Product quality issue [None]
  - Blood pressure increased [None]
  - Cough [None]
  - Drug ineffective [None]
  - Therapeutic response decreased [None]
  - Product quality issue [None]
